FAERS Safety Report 17874318 (Version 1)
Quarter: 2020Q2

REPORT INFORMATION
  Report Type: Spontaneous
  Country: JP (occurrence: JP)
  Receive Date: 20200609
  Receipt Date: 20200609
  Transmission Date: 20200714
  Serious: Yes (Other)
  Sender: FDA-Public Use
  Company Number: JP-STRIDES ARCOLAB LIMITED-2020SP006645

PATIENT
  Age: 66 Year
  Sex: Female

DRUGS (2)
  1. TACROLIMUS. [Suspect]
     Active Substance: TACROLIMUS
     Indication: DERMATOMYOSITIS
     Dosage: 2.5 MILLIGRAM, UNKNOWN
     Route: 065
  2. PREDNISOLONE. [Suspect]
     Active Substance: PREDNISOLONE
     Indication: DERMATOMYOSITIS
     Dosage: 45 MILLIGRAM, UNKNOWN
     Route: 065

REACTIONS (10)
  - Off label use [Unknown]
  - IIIrd nerve paralysis [Unknown]
  - Tremor [Unknown]
  - Hyperglycaemia [Unknown]
  - Hypothyroidism [Unknown]
  - Cystitis viral [Unknown]
  - Glaucoma [Unknown]
  - Herpes zoster [Unknown]
  - Cytomegalovirus infection reactivation [Unknown]
  - Oesophageal candidiasis [Unknown]
